FAERS Safety Report 17557707 (Version 1)
Quarter: 2020Q1

REPORT INFORMATION
  Report Type: Spontaneous
  Country: DE (occurrence: DE)
  Receive Date: 20200318
  Receipt Date: 20200318
  Transmission Date: 20200409
  Serious: Yes (Hospitalization)
  Sender: FDA-Public Use
  Company Number: DE-TEVA-2020-DE-1202822

PATIENT
  Age: 62 Year
  Sex: Male

DRUGS (8)
  1. MAALOXAN 25MVAL [Concomitant]
     Dosage: 230|400 MG, 1-0-0-0, SUSPENSION
  2. METAMIZOL [Concomitant]
     Active Substance: METAMIZOLE SODIUM
     Dosage: 500 MG, 1-1-1-1, TABLETS
  3. TORASEMID [Suspect]
     Active Substance: TORSEMIDE
     Dosage: 10 MG, 1-0-0-0, TABLETS
     Route: 065
  4. RIVAROXABAN [Concomitant]
     Active Substance: RIVAROXABAN
     Dosage: 20 MG, 0-1-0-0, TABLETS
  5. OXYCODON [Suspect]
     Active Substance: OXYCODONE
     Dosage: 10 MG, 1-0-1-0, CAPSULES
     Route: 065
  6. METOPROLOL. [Concomitant]
     Active Substance: METOPROLOL
     Dosage: 23.75 MG, 0.5-0-0.5-0, PROLONGED-RELEASE TABLET
  7. BISACODYL. [Concomitant]
     Active Substance: BISACODYL
     Dosage: 10 MG, NEED, SUPPOSITORIES
  8. PANTOPRAZOL [Concomitant]
     Active Substance: PANTOPRAZOLE SODIUM
     Dosage: 40 MG, 1-0-0-0, TABLETS

REACTIONS (2)
  - Abdominal pain upper [Recovered/Resolved]
  - Renal impairment [Recovered/Resolved]
